FAERS Safety Report 6849102-0 (Version None)
Quarter: 2010Q3

REPORT INFORMATION
  Report Type: 
  Country: None (occurrence: None)
  Receive Date: 20100716
  Receipt Date: 20070927
  Transmission Date: 20110219
  Serious: No
  Sender: FDA-Public Use
  Company Number: US-PFIZER INC-2007082057

PATIENT
  Sex: Female

DRUGS (2)
  1. CHANTIX [Suspect]
     Indication: SMOKING CESSATION THERAPY
     Dates: start: 20070801, end: 20070901
  2. SUBUTEX [Interacting]
     Indication: DRUG DEPENDENCE

REACTIONS (6)
  - ABNORMAL DREAMS [None]
  - ANXIETY [None]
  - DRUG INTERACTION [None]
  - NAUSEA [None]
  - NIGHT SWEATS [None]
  - VOMITING [None]
